FAERS Safety Report 14552103 (Version 1)
Quarter: 2018Q1

REPORT INFORMATION
  Report Type: Spontaneous
  Country: IR (occurrence: IR)
  Receive Date: 20180220
  Receipt Date: 20180220
  Transmission Date: 20180509
  Serious: Yes (Death, Hospitalization, Other)
  Sender: FDA-Public Use
  Company Number: IR-ALKEM LABORATORIES LIMITED-IR-ALKEM-2018-00492

PATIENT
  Age: 25 Year
  Sex: Male

DRUGS (4)
  1. CALCIUM CARBONATE. [Suspect]
     Active Substance: CALCIUM CARBONATE
     Dosage: 1.16 MG/KG/MIN AT ADMISSION
     Route: 042
  2. CALCIUM CARBONATE. [Suspect]
     Active Substance: CALCIUM CARBONATE
     Indication: PRODUCT USED FOR UNKNOWN INDICATION
     Dosage: 2 G, UNK INJECTED
     Route: 042
  3. CALCIUM CARBONATE. [Suspect]
     Active Substance: CALCIUM CARBONATE
     Dosage: 0.5 MG/KG/MIN AT 30 HOURS
     Route: 042
  4. AMLODIPINE BESYLATE. [Suspect]
     Active Substance: AMLODIPINE BESYLATE
     Indication: PRODUCT USED FOR UNKNOWN INDICATION
     Dosage: 450 MG, UNK
     Route: 065

REACTIONS (11)
  - Hypotension [Unknown]
  - Tachycardia [Unknown]
  - Nodal rhythm [Unknown]
  - Toxicity to various agents [Unknown]
  - Blood calcium increased [Unknown]
  - Multiple organ dysfunction syndrome [Fatal]
  - Pulmonary oedema [Recovered/Resolved]
  - Intentional overdose [Unknown]
  - Blood creatinine increased [Unknown]
  - Anuria [Unknown]
  - Metabolic acidosis [Unknown]
